FAERS Safety Report 21792083 (Version 2)
Quarter: 2023Q2

REPORT INFORMATION
  Report Type: Spontaneous
  Country: DE (occurrence: DE)
  Receive Date: 20221229
  Receipt Date: 20230411
  Transmission Date: 20230721
  Serious: Yes (Other)
  Sender: FDA-Public Use
  Company Number: DE-JNJFOC-20221249065

PATIENT
  Age: 32 Year
  Sex: Male

DRUGS (4)
  1. RISPERDAL [Suspect]
     Active Substance: RISPERIDONE
     Indication: Schizophrenia
     Route: 048
     Dates: start: 20220511
  2. PIPAMPERONE [Suspect]
     Active Substance: PIPAMPERONE
     Indication: Schizophrenia
     Route: 048
     Dates: start: 20220502, end: 20220601
  3. PIPAMPERONE [Suspect]
     Active Substance: PIPAMPERONE
     Route: 048
     Dates: start: 20220601
  4. CARIPRAZINE [Suspect]
     Active Substance: CARIPRAZINE
     Indication: Schizophrenia
     Route: 048
     Dates: start: 20220524, end: 20220720

REACTIONS (1)
  - Dyskinesia [Recovering/Resolving]

NARRATIVE: CASE EVENT DATE: 20220521
